FAERS Safety Report 6497576-X (Version None)
Quarter: 2009Q4

REPORT INFORMATION
  Report Type: 
  Country: None (occurrence: None)
  Receive Date: 20091215
  Receipt Date: 20091203
  Transmission Date: 20100525
  Serious: Yes (Other)
  Sender: FDA-Public Use
  Company Number: US-JNJFOC-20090908708

PATIENT
  Age: 12 Month
  Sex: Male
  Weight: 9.98 kg

DRUGS (3)
  1. TYLENOL (CAPLET) [Suspect]
  2. TYLENOL (CAPLET) [Suspect]
     Indication: TEETHING
     Dosage: CHILD WAS GIVEN 5ML, 4-5 HOURS PER DAY.
  3. INFANTS' MOTRIN [Concomitant]
     Indication: PYREXIA

REACTIONS (6)
  - BACTERIAL INFECTION [None]
  - CHILLS [None]
  - DIARRHOEA [None]
  - EATING DISORDER [None]
  - OVERDOSE [None]
  - TRANSMISSION OF AN INFECTIOUS AGENT VIA A MEDICINAL PRODUCT [None]
